FAERS Safety Report 9368953 (Version 2)
Quarter: 2014Q1

REPORT INFORMATION
  Report Type: Spontaneous
  Country: DE (occurrence: None)
  Receive Date: 20130621
  Receipt Date: 20140304
  Transmission Date: 20141002
  Serious: Yes (Hospitalization)
  Sender: FDA-Public Use
  Company Number: KAD201306-000738

PATIENT
  Age: 51 None
  Sex: Male
  Weight: 80 kg

DRUGS (5)
  1. RIBAVIRIN [Suspect]
     Indication: HEPATITIS C
     Dosage: 1000 MG/DAY (AT BASELINE)
  2. PEGINTERFERON ALFA-2A [Suspect]
     Indication: HEPATITIS C
     Dosage: 180 MCG - STOPPED
  3. TELAPREVIR (TELAPREVIR) [Suspect]
     Indication: HEPATITIS C
     Dosage: STOPPED
  4. TACROLIMUS (TACROLIMUS) [Suspect]
     Indication: IMMUNOSUPPRESSION
     Dosage: STOPPED
  5. STEROID [Suspect]
     Indication: HEPATITIS C

REACTIONS (2)
  - No therapeutic response [None]
  - Pneumonia bacterial [None]
